FAERS Safety Report 19011879 (Version 1)
Quarter: 2021Q1

REPORT INFORMATION
  Report Type: Spontaneous
  Country: US (occurrence: US)
  Receive Date: 20210315
  Receipt Date: 20210315
  Transmission Date: 20210420
  Serious: No
  Sender: FDA-Public Use
  Company Number: US-PERRIGO-20US015947

PATIENT
  Sex: Female
  Weight: 47.62 kg

DRUGS (1)
  1. SCOPOLAMINE [Suspect]
     Active Substance: SCOPOLAMINE
     Indication: MOTION SICKNESS
     Dosage: 1 MG, EVERY 3 DAYS
     Route: 062
     Dates: start: 2020

REACTIONS (10)
  - Application site papules [Recovered/Resolved]
  - Application site erythema [Not Recovered/Not Resolved]
  - Drug ineffective [Unknown]
  - Mucosal dryness [Not Recovered/Not Resolved]
  - Thirst [Not Recovered/Not Resolved]
  - Application site swelling [Not Recovered/Not Resolved]
  - Dizziness [Unknown]
  - Application site discharge [Not Recovered/Not Resolved]
  - Product administered at inappropriate site [Recovered/Resolved]
  - Application site pruritus [Not Recovered/Not Resolved]

NARRATIVE: CASE EVENT DATE: 2020
